FAERS Safety Report 4290192-X (Version None)
Quarter: 2004Q1

REPORT INFORMATION
  Report Type: 
  Country: None (occurrence: None)
  Receive Date: 20040209
  Receipt Date: 20040115
  Transmission Date: 20041129
  Serious: Yes (Hospitalization)
  Sender: FDA-Public Use
  Company Number: A02200400177

PATIENT
  Age: 94 Year
  Sex: Female

DRUGS (6)
  1. PLAVIX [Suspect]
     Dosage: 75 MG OD ORAL
     Route: 048
     Dates: start: 20031001, end: 20031015
  2. DIALGIREX - (DEXTROPROPOXYPHENE/PARACETAMOL) - CAPSULE [Suspect]
     Indication: ARTHROPATHY
     Dosage: 2 DF QD ORAL
     Route: 048
     Dates: end: 20031022
  3. LEVOTHYROXINE SODIUM [Suspect]
     Indication: HYPOTHYROIDISM
     Dosage: 50 MCG OD ORAL
     Route: 048
  4. DAFLON - (DIOSMIN) - TABLET - 500 MG [Suspect]
     Indication: CARDIOVASCULAR DISORDER
     Dosage: 2000 MG OD ORAL
     Route: 048
     Dates: end: 20031022
  5. ATARAX [Suspect]
     Indication: ANXIETY
     Dosage: 25 MG OD ORAL
     Route: 048
  6. GAVISCON [Suspect]
     Indication: OESOPHAGITIS
     Dosage: 2 DF QD ORAL
     Route: 048

REACTIONS (6)
  - ECZEMA NUMMULAR [None]
  - IMPETIGO [None]
  - PRURITUS [None]
  - PURPURA [None]
  - RASH ERYTHEMATOUS [None]
  - RASH PAPULAR [None]
